FAERS Safety Report 5748790-X (Version None)
Quarter: 2008Q2

REPORT INFORMATION
  Report Type: 
  Country: None (occurrence: None)
  Receive Date: 20080521
  Receipt Date: 20080506
  Transmission Date: 20081010
  Serious: Yes (Hospitalization)
  Sender: FDA-Public Use
  Company Number: 2008000310

PATIENT
  Age: 70 Year
  Sex: Male

DRUGS (22)
  1. ERLOTINIB (ERLOTINIB HCI) (TABLET) (ERLOTINIB HCI) [Suspect]
     Indication: PANCREATIC CARCINOMA
     Dosage: 100 MG, QD, ORAL
     Route: 048
     Dates: start: 20070619
  2. GEMCITABINE [Suspect]
     Indication: PANCREATIC CARCINOMA
     Dosage: 1000 MG/M2, Q4WEEK, INTRAVENOUS
     Route: 042
     Dates: start: 20070619
  3. LEVOFLOXACIN [Suspect]
  4. DEXAMETHASONE SODIUM PHOSPHATE [Concomitant]
  5. GRANISETRON HYDROCHLORIDE (GRANISETRON HYDROCHLORIDE) [Concomitant]
  6. RABEPRAZOLE SODIUM [Concomitant]
  7. PANCREATIC ENZYME [Concomitant]
  8. CAMOSTAT MESILATE (CAMOSTAT MESILATE) [Concomitant]
  9. URSODIOL [Concomitant]
  10. DIGESTIVE ENZYME NOS [Concomitant]
  11. DIAZEPAM [Concomitant]
  12. POLAPREZINC (POLAPREZINC) [Concomitant]
  13. FERROUS CITRATE [Concomitant]
  14. LOXOPROFEN SODIUM (LOXOPROFEN SODIUM) [Concomitant]
  15. LOPERAMIDE HYDROCHLORIDE [Concomitant]
  16. NAFTOPIDIL (NAFTOPIDIL) [Concomitant]
  17. SOLIFENACIN SUCCINATE [Concomitant]
  18. INSULIN ASPART (INSULIN ASPART) [Concomitant]
  19. INSULIN HUMAN (INSULIN HUMAN) [Concomitant]
  20. SULPIRIDE (SULPIRIDE) [Concomitant]
  21. UREA CREAM [Concomitant]
  22. LULICONAZOLE [Concomitant]

REACTIONS (6)
  - ASCITES [None]
  - BONE MARROW FAILURE [None]
  - HYPOALBUMINAEMIA [None]
  - OEDEMA PERIPHERAL [None]
  - PLEURAL EFFUSION [None]
  - WEIGHT INCREASED [None]
